FAERS Safety Report 6738315-4 (Version None)
Quarter: 2010Q2

REPORT INFORMATION
  Report Type: 
  Country: None (occurrence: None)
  Receive Date: 20100524
  Receipt Date: 20100518
  Transmission Date: 20101027
  Serious: Yes (Disabling)
  Sender: FDA-Public Use
  Company Number: CA-MERCK-1005USA02631

PATIENT
  Sex: Female

DRUGS (6)
  1. COZAAR [Suspect]
     Route: 048
  2. CALCIUM (UNSPECIFIED) AND VITAMIN D (UNSPECIFIED) [Concomitant]
     Route: 048
  3. HYZAAR [Suspect]
     Route: 048
  4. POTASSIUM (UNSPECIFIED) [Concomitant]
     Route: 048
  5. MAGNESIUM (UNSPECIFIED) [Concomitant]
     Route: 048
  6. ELTROXIN [Concomitant]
     Route: 048

REACTIONS (5)
  - ADVERSE EVENT [None]
  - DIZZINESS [None]
  - IMPAIRED DRIVING ABILITY [None]
  - NAUSEA [None]
  - VERTIGO [None]
